FAERS Safety Report 6223569-3 (Version None)
Quarter: 2009Q2

REPORT INFORMATION
  Report Type: 
  Country: None (occurrence: None)
  Receive Date: 20090610
  Receipt Date: 20090525
  Transmission Date: 20091009
  Serious: Yes (Hospitalization)
  Sender: FDA-Public Use
  Company Number: DSA_33775_2009

PATIENT
  Sex: Female

DRUGS (10)
  1. CARDIZEM [Suspect]
     Indication: DRUG USE FOR UNKNOWN INDICATION
     Dosage: (DF)
  2. PLAVIX [Suspect]
     Indication: MYOCARDIAL INFARCTION
     Dosage: (ORAL)
     Route: 048
     Dates: start: 20031231
  3. FOSAMAX [Concomitant]
  4. LIPITOR [Concomitant]
  5. PREDNISONE [Concomitant]
  6. RANITIDINE [Concomitant]
  7. IMDUR [Concomitant]
  8. CALCIUM CARBONATE [Concomitant]
  9. KARVEA [Concomitant]
  10. KOSTEO [Concomitant]

REACTIONS (2)
  - MYOCARDIAL INFARCTION [None]
  - RENAL PAIN [None]
